FAERS Safety Report 4398011-8 (Version None)
Quarter: 2004Q2

REPORT INFORMATION
  Report Type: 
  Country: None (occurrence: None)
  Receive Date: 20040621
  Receipt Date: 20040217
  Transmission Date: 20050107
  Serious: Yes (Hospitalization, Other)
  Sender: FDA-Public Use
  Company Number: 2020130

PATIENT
  Age: 47 Year
  Sex: Male
  Weight: 86.6 kg

DRUGS (29)
  1. OXYCONTIN [Suspect]
     Indication: PAIN
     Dosage: 20 MG, BID, ORAL
     Route: 048
     Dates: start: 20000101
  2. LORTAB [Suspect]
     Dosage: 5 MG, SEE TEXT
     Dates: start: 19960101
  3. VALIUM [Suspect]
     Dosage: 10 MG, SEE TEXT
     Dates: start: 19930101, end: 20000101
  4. OXYIR [Concomitant]
  5. HUMULIN R [Concomitant]
  6. HUMULIN N [Concomitant]
  7. TENORMIN [Concomitant]
  8. TRICOR [Concomitant]
  9. LIPITOR [Concomitant]
  10. VITAMIN A [Concomitant]
  11. LASIX [Concomitant]
  12. NIACIN [Concomitant]
  13. CARDIZEM [Concomitant]
  14. NITROGLYCERIN [Concomitant]
  15. ATIVAN [Concomitant]
  16. VITAMIN E [Concomitant]
  17. MOTRIN [Concomitant]
  18. TYLENOL [Concomitant]
  19. SENNA [Concomitant]
  20. PHENERGAN [Concomitant]
  21. ACETYLSALICYLIC ACID SRT [Concomitant]
  22. SLOW-K [Concomitant]
  23. LORAZEPAM [Concomitant]
  24. VITAMIN B-12 [Concomitant]
  25. GRAPE SEED EXTRACT [Concomitant]
  26. ST. JOHN'S WORT [Concomitant]
  27. VITAMIN C [Concomitant]
  28. GARLIC [Concomitant]
  29. COENZYME Q10 [Concomitant]

REACTIONS (38)
  - ABDOMINAL PAIN UPPER [None]
  - ACCIDENT [None]
  - AGITATION [None]
  - ANAEMIA [None]
  - ANOREXIA [None]
  - ARTHRALGIA [None]
  - ASTHENIA [None]
  - CHRONIC FATIGUE SYNDROME [None]
  - CONSTIPATION [None]
  - CONTUSION [None]
  - DEPRESSION [None]
  - DIABETES MELLITUS [None]
  - DISTURBANCE IN ATTENTION [None]
  - DIZZINESS [None]
  - DRUG ABUSER [None]
  - DRUG DEPENDENCE [None]
  - DRUG WITHDRAWAL SYNDROME [None]
  - EUPHORIC MOOD [None]
  - HEADACHE [None]
  - HEARING IMPAIRED [None]
  - INSOMNIA [None]
  - JOINT SWELLING [None]
  - JUDGEMENT IMPAIRED [None]
  - LETHARGY [None]
  - LISTLESS [None]
  - MALAISE [None]
  - MEMORY IMPAIRMENT [None]
  - MOOD SWINGS [None]
  - MUSCLE CRAMP [None]
  - OEDEMA PERIPHERAL [None]
  - PRURITUS [None]
  - SELF-INJURIOUS IDEATION [None]
  - SINUSITIS [None]
  - SOMNOLENCE [None]
  - TINNITUS [None]
  - TOOTH DISORDER [None]
  - URINARY HESITATION [None]
  - VISUAL DISTURBANCE [None]
